FAERS Safety Report 8983480 (Version 2)
Quarter: 2013Q1

REPORT INFORMATION
  Report Type: Report from Study
  Country: JP (occurrence: JP)
  Receive Date: 20121224
  Receipt Date: 20130220
  Transmission Date: 20140127
  Serious: Yes (Death, Hospitalization, Other)
  Sender: FDA-Public Use
  Company Number: JP-009507513-2011SP044117

PATIENT
  Age: 61 Year
  Sex: Female
  Weight: 49 kg

DRUGS (22)
  1. TEMODAL [Suspect]
     Indication: ANAPLASTIC ASTROCYTOMA
     Dosage: 75 MG/M2, QD
     Route: 048
     Dates: start: 20100204, end: 20100204
  2. TEMODAL [Suspect]
     Dosage: 75 MG/M2, QD
     Route: 048
     Dates: start: 20100206, end: 20100212
  3. TEMODAL [Suspect]
     Dosage: 75 MG/M2, QD
     Route: 048
     Dates: start: 20100218, end: 20100218
  4. TEMODAL [Suspect]
     Dosage: 75 MG/M2, QD
     Route: 048
     Dates: start: 20100223, end: 20100223
  5. TEMODAL [Suspect]
     Dosage: 75 MG/M2, QD
     Route: 048
     Dates: start: 20100226, end: 20100226
  6. TEMODAL [Suspect]
     Dosage: 75 MG/M2, QD
     Route: 048
     Dates: start: 20100301, end: 20100305
  7. TEMODAL [Suspect]
     Dosage: 75 MG/M2, QD
     Route: 048
     Dates: start: 20100308, end: 20100308
  8. TEMODAL [Suspect]
     Dosage: 75 MG/M2, QD
     Route: 048
     Dates: start: 20100310, end: 20100310
  9. TEMODAL [Suspect]
     Dosage: 75 MG/M2, QD
     Route: 048
     Dates: start: 20100312, end: 20100312
  10. TEMODAL [Suspect]
     Dosage: 75 MG/M2, QD
     Route: 048
     Dates: start: 20100316, end: 20100316
  11. TEMODAL [Suspect]
     Dosage: 75 MG/M2, QD
     Route: 048
     Dates: start: 20100320, end: 20100323
  12. TEMODAL [Suspect]
     Dosage: 150 MG/M2, QD
     Route: 048
     Dates: start: 20100423, end: 20100427
  13. DEPAKENE [Suspect]
     Indication: PROPHYLAXIS
     Dosage: UNK
     Route: 048
  14. DENOSINE [Suspect]
     Indication: PNEUMONIA CYTOMEGALOVIRAL
     Dosage: UNK
     Route: 041
     Dates: start: 20100514, end: 20100521
  15. NAVOBAN [Concomitant]
     Indication: PROPHYLAXIS
     Route: 048
     Dates: start: 20100204, end: 20100427
  16. MAGMITT [Concomitant]
     Indication: PROPHYLAXIS
     Route: 048
     Dates: start: 20100204, end: 20100325
  17. RINDERON (BETAMETHASONE) [Concomitant]
     Indication: PROPHYLAXIS
     Route: 048
     Dates: start: 20100217, end: 20100518
  18. GASTER D [Concomitant]
     Indication: PROPHYLAXIS
     Route: 048
     Dates: start: 20100217, end: 20100302
  19. FAMOTIDINE [Concomitant]
     Indication: PROPHYLAXIS
     Route: 048
     Dates: start: 20100303, end: 20100518
  20. CORTRIL [Concomitant]
     Indication: PROPHYLAXIS
     Route: 048
     Dates: start: 20100606, end: 20100907
  21. BAKTAR [Concomitant]
     Indication: ANTIFUNGAL PROPHYLAXIS
     Route: 048
     Dates: start: 20100217
  22. MAGNESIUM OXIDE [Concomitant]
     Indication: PROPHYLAXIS
     Dosage: UNK
     Route: 048
     Dates: start: 20100204, end: 20100209

REACTIONS (10)
  - Disease progression [Fatal]
  - Pneumonia cytomegaloviral [Recovering/Resolving]
  - Pneumonia cytomegaloviral [Unknown]
  - White blood cell count decreased [Recovering/Resolving]
  - Lymphocyte count decreased [Recovering/Resolving]
  - Anaemia [Unknown]
  - Neutrophil count decreased [Recovered/Resolved]
  - Platelet count decreased [Recovering/Resolving]
  - Decreased appetite [Recovering/Resolving]
  - Nausea [Recovering/Resolving]
